FAERS Safety Report 8303041-7 (Version None)
Quarter: 2012Q2

REPORT INFORMATION
  Report Type: 
  Country: None (occurrence: None)
  Receive Date: 20120422
  Receipt Date: 20120413
  Transmission Date: 20120825
  Serious: Yes (Life-Threatening)
  Sender: FDA-Public Use
  Company Number: JP-VERTEX PHARMACEUTICALS INC.-AE-2012-002091

PATIENT
  Age: 64 Year
  Sex: Male

DRUGS (9)
  1. TELAVIC (TELAPREVIR) [Suspect]
     Route: 048
     Dates: start: 20120205, end: 20120205
  2. TELAVIC (TELAPREVIR) [Suspect]
     Indication: HEPATITIS C
     Route: 048
     Dates: start: 20120202, end: 20120204
  3. MAGMITT [Concomitant]
     Route: 048
     Dates: end: 20120205
  4. EPADEL [Concomitant]
     Route: 048
     Dates: end: 20120205
  5. PEGINTERFERON ALFA-2B [Concomitant]
     Indication: HEPATITIS C
     Route: 051
     Dates: start: 20120202, end: 20120202
  6. ACTOS [Concomitant]
     Route: 048
     Dates: end: 20120205
  7. RIBAVIRIN [Concomitant]
     Indication: HEPATITIS C
     Route: 048
     Dates: start: 20120202, end: 20120205
  8. RABEPRAZOLE SODIUM [Concomitant]
     Route: 048
     Dates: end: 20120205
  9. JANUVIA [Concomitant]
     Route: 048
     Dates: end: 20120205

REACTIONS (2)
  - DRUG ERUPTION [None]
  - PYREXIA [None]
